FAERS Safety Report 8947877 (Version 1)
Quarter: 2012Q4

REPORT INFORMATION
  Report Type: 
  Country: US (occurrence: US)
  Receive Date: 20121204
  Receipt Date: 20121204
  Transmission Date: 20130627
  Serious: Yes (Hospitalization)
  Sender: FDA-Public Use
  Company Number: US-PFIZER INC-2012299222

PATIENT
  Age: 20 Year
  Sex: Male
  Weight: 80 kg

DRUGS (4)
  1. TOPIRAMATE [Suspect]
     Indication: BREAKTHROUGH SEIZURE
     Dosage: 200 mg, 2x/day (5 mg/kg/day)
  2. PHENYTOIN SODIUM [Suspect]
     Indication: SEIZURES
     Dosage: 300 mg, 2x/day (7.5 mg/kg/day)
  3. VALPROIC ACID [Suspect]
     Indication: SEIZURE
  4. DIVALPROEX SODIUM [Suspect]
     Indication: CONVULSIONS
     Dosage: 1500-mg delayed-release tablets twice/day (37.5 mg/kg/day)

REACTIONS (2)
  - Acidosis hyperchloraemic [Recovering/Resolving]
  - Mental status changes [Recovered/Resolved]
